FAERS Safety Report 10563462 (Version 2)
Quarter: 2014Q4

REPORT INFORMATION
  Report Type: Spontaneous
  Country: US (occurrence: US)
  Receive Date: 20141104
  Receipt Date: 20141231
  Transmission Date: 20150529
  Serious: Yes (Other)
  Sender: FDA-Public Use
  Company Number: US-PFIZER INC-2014301063

PATIENT
  Age: 56 Year
  Sex: Female
  Weight: 54 kg

DRUGS (9)
  1. LISINOPRIL. [Concomitant]
     Active Substance: LISINOPRIL
     Indication: HYPERTENSION
     Dosage: 20 MG, 2X/DAY
  2. METFORMIN [Concomitant]
     Active Substance: METFORMIN HYDROCHLORIDE
     Dosage: 250 MG, 2X/DAY
  3. LABETALOL [Concomitant]
     Active Substance: LABETALOL\LABETALOL HYDROCHLORIDE
     Indication: BLOOD PRESSURE
     Dosage: 20 MG, 2X/DAY
  4. HYDRALAZINE [Concomitant]
     Active Substance: HYDRALAZINE HYDROCHLORIDE
     Indication: BLOOD PRESSURE
     Dosage: 25 MG, 2X/DAY
  5. GLIPIZIDE. [Concomitant]
     Active Substance: GLIPIZIDE
     Dosage: 5 MG, 2X/DAY
  6. TUMS [Concomitant]
     Active Substance: CALCIUM CARBONATE
     Indication: MINERAL SUPPLEMENTATION
     Dosage: 500 MG, 1X/DAY
  7. LYRICA [Concomitant]
     Active Substance: PREGABALIN
     Indication: NEURALGIA
     Dosage: UNK
     Dates: start: 201210
  8. LANTUS [Concomitant]
     Active Substance: INSULIN GLARGINE
     Dosage: 10 ML (CC), 1X/DAY
     Dates: start: 2013
  9. LIPITOR [Suspect]
     Active Substance: ATORVASTATIN CALCIUM
     Indication: BLOOD GLUCOSE
     Dosage: 100 MG, 3X/DAY
     Dates: start: 201210, end: 201410

REACTIONS (8)
  - Blood glucose increased [Unknown]
  - Diabetes mellitus [Unknown]
  - Drug administration error [Unknown]
  - Glomerular filtration rate decreased [Unknown]
  - Ankle fracture [Unknown]
  - Bruxism [Unknown]
  - Tooth loss [Unknown]
  - Overdose [Unknown]

NARRATIVE: CASE EVENT DATE: 201210
